FAERS Safety Report 12880629 (Version 1)
Quarter: 2016Q4

REPORT INFORMATION
  Report Type: Spontaneous
  Country: US (occurrence: US)
  Receive Date: 20161022
  Receipt Date: 20161022
  Transmission Date: 20170207
  Serious: Yes (Other)
  Sender: FDA-Public Use
  Company Number: None

PATIENT
  Age: 59 Year
  Sex: Female

DRUGS (16)
  1. CYCLOBENZAPR [Concomitant]
  2. FOLIC ACID. [Concomitant]
     Active Substance: FOLIC ACID
  3. ATORVASTATIN [Concomitant]
     Active Substance: ATORVASTATIN
  4. SIMPONI [Suspect]
     Active Substance: GOLIMUMAB
     Indication: RHEUMATOID ARTHRITIS
     Route: 048
     Dates: start: 201401
  5. METHOTREXATE. [Concomitant]
     Active Substance: METHOTREXATE
  6. CELEBREX [Concomitant]
     Active Substance: CELECOXIB
  7. XARELTO [Concomitant]
     Active Substance: RIVAROXABAN
  8. NORVASC [Concomitant]
     Active Substance: AMLODIPINE BESYLATE
  9. METOPROLOL. [Concomitant]
     Active Substance: METOPROLOL
  10. PROPOXY/APAP [Concomitant]
  11. DICLOFEN [Concomitant]
     Active Substance: DICLOFENAC SODIUM
  12. VITAMIN D [Concomitant]
     Active Substance: CHOLECALCIFEROL
  13. LYRICA [Concomitant]
     Active Substance: PREGABALIN
  14. METOPROLOL. [Concomitant]
     Active Substance: METOPROLOL
  15. ASPIRIN. [Concomitant]
     Active Substance: ASPIRIN
  16. METHOTREXATE. [Concomitant]
     Active Substance: METHOTREXATE

REACTIONS (3)
  - Drug dose omission [None]
  - Withdrawal syndrome [None]
  - Cerebrovascular accident [None]

NARRATIVE: CASE EVENT DATE: 201609
